FAERS Safety Report 12130623 (Version 4)
Quarter: 2017Q3

REPORT INFORMATION
  Report Type: Report from Study
  Country: DE (occurrence: DE)
  Receive Date: 20160301
  Receipt Date: 20170706
  Transmission Date: 20171127
  Serious: Yes (Hospitalization)
  Sender: FDA-Public Use
  Company Number: DE-ROCHE-1714621

PATIENT
  Sex: Female

DRUGS (14)
  1. ROACTEMRA [Suspect]
     Active Substance: TOCILIZUMAB
     Indication: RHEUMATOID ARTHRITIS
     Route: 058
     Dates: start: 20150501
  2. NOVAMINSULFON [Concomitant]
     Active Substance: METAMIZOLE
     Route: 065
  3. CONCOR [Concomitant]
     Active Substance: BISOPROLOL FUMARATE
     Route: 065
  4. TOREM [Concomitant]
     Active Substance: TORSEMIDE
     Dosage: 0.25 TABLETS
     Route: 065
  5. LIPROLOG [Concomitant]
     Active Substance: INSULIN LISPRO
  6. PANTOPRAZOL [Concomitant]
     Active Substance: PANTOPRAZOLE SODIUM
     Dosage: 1 TABLET
     Route: 065
  7. PALLADON [Concomitant]
     Active Substance: HYDROMORPHONE
     Dosage: 3 TABLETS
     Route: 065
  8. ATORVASTATIN [Concomitant]
     Active Substance: ATORVASTATIN
     Dosage: 1 TABLET
     Route: 065
  9. AMITRIPTYLIN [Concomitant]
     Active Substance: AMITRIPTYLINE
     Dosage: 1 TABLET
     Route: 065
  10. INSULIN [Concomitant]
     Active Substance: INSULIN NOS
     Route: 065
  11. BISOPROLOL [Concomitant]
     Active Substance: BISOPROLOL
     Dosage: 2 TABLETS
     Route: 065
  12. XIPAMID [Concomitant]
     Active Substance: XIPAMIDE
     Dosage: 1 TABLET
     Route: 065
  13. ARAVA [Concomitant]
     Active Substance: LEFLUNOMIDE
     Dosage: 1 TABLET
     Route: 065
  14. CARMEN (GERMANY) [Concomitant]
     Active Substance: LERCANIDIPINE HYDROCHLORIDE
     Route: 065

REACTIONS (8)
  - Hyperhidrosis [Recovered/Resolved]
  - Dyspnoea [Unknown]
  - Night sweats [Recovered/Resolved]
  - Sleep disorder [Not Recovered/Not Resolved]
  - Cardiovascular disorder [Recovered/Resolved]
  - Pain [Unknown]
  - Weight decreased [Recovered/Resolved]
  - Hypertension [Unknown]

NARRATIVE: CASE EVENT DATE: 20160216
